FAERS Safety Report 4584386-3 (Version None)
Quarter: 2005Q1

REPORT INFORMATION
  Report Type: 
  Country: None (occurrence: None)
  Receive Date: 20050125
  Receipt Date: 20040913
  Transmission Date: 20050727
  Serious: Yes (Hospitalization, Other)
  Sender: FDA-Public Use
  Company Number: USA031049672

PATIENT
  Age: 90 Year
  Sex: Female
  Weight: 41 kg

DRUGS (7)
  1. EVISTA [Suspect]
     Dates: start: 20010101
  2. FORTEO [Suspect]
     Indication: OSTEOPOROSIS
     Dosage: 20 UG/L DAY
     Dates: start: 20030901
  3. MIACALCIN [Concomitant]
  4. BLOOD PRESSUE MEDICINE [Concomitant]
  5. CALCIUM GLUCONATE [Concomitant]
  6. LASIX [Concomitant]
  7. K-DUR 10 [Concomitant]

REACTIONS (5)
  - FATIGUE [None]
  - HIP FRACTURE [None]
  - INCONTINENCE [None]
  - OVERDOSE [None]
  - SURGERY [None]
